FAERS Safety Report 7987632-9 (Version None)
Quarter: 2011Q4

REPORT INFORMATION
  Report Type: 
  Country: None (occurrence: None)
  Receive Date: 20111216
  Receipt Date: 20101201
  Transmission Date: 20120403
  Serious: No
  Sender: FDA-Public Use
  Company Number: US-BRISTOL-MYERS SQUIBB COMPANY-15309198

PATIENT
  Age: 16 Year
  Sex: Female

DRUGS (1)
  1. ABILIFY [Suspect]
     Indication: BIPOLAR DISORDER
     Dosage: DOSE INCREASED TO MORE THAN 5MG,QD. CURRENTLY:2.5MG,QD
     Route: 048
     Dates: start: 20070101

REACTIONS (1)
  - SPEECH DISORDER [None]
